FAERS Safety Report 20483589 (Version 14)
Quarter: 2023Q1

REPORT INFORMATION
  Report Type: Spontaneous
  Country: CA (occurrence: CA)
  Receive Date: 20220217
  Receipt Date: 20230328
  Transmission Date: 20230417
  Serious: Yes (Hospitalization, Other)
  Sender: FDA-Public Use
  Company Number: CA-CELLTRION INC.-2021CA006365

PATIENT

DRUGS (33)
  1. INFLECTRA [Suspect]
     Active Substance: INFLIXIMAB-DYYB
     Indication: Colitis ulcerative
     Dosage: 1000 MG EVERY 4 WEEKS (1ST DOSE IN HOSPITAL, WEEK 0)
     Route: 042
     Dates: start: 20210401
  2. INFLECTRA [Suspect]
     Active Substance: INFLIXIMAB-DYYB
     Dosage: 1000 MG, EVERY 4 WEEKS
     Route: 042
     Dates: start: 20210409
  3. INFLECTRA [Suspect]
     Active Substance: INFLIXIMAB-DYYB
     Dosage: 1000 MG, EVERY 4 WEEKS (PHYSICIAN ASKED FOR DOSE # 2 TO BE GIVEN ON 28APR2021 THEN EVERY 4 WEEKS )
     Route: 042
     Dates: start: 20210428
  4. INFLECTRA [Suspect]
     Active Substance: INFLIXIMAB-DYYB
     Dosage: 1000 MG, EVERY 4 WEEKS (PHYSICIAN ASKED FOR DOSE # 2 TO BE GIVEN ON 28APR2021 THEN EVERY 4 WEEKS )
     Route: 042
     Dates: start: 20210506
  5. INFLECTRA [Suspect]
     Active Substance: INFLIXIMAB-DYYB
     Dosage: 1000 MG, EVERY 4 WEEKS
     Route: 042
     Dates: start: 20210602
  6. INFLECTRA [Suspect]
     Active Substance: INFLIXIMAB-DYYB
     Dosage: 1000 MG, EVERY 4 WEEKS
     Route: 042
     Dates: start: 20210628
  7. INFLECTRA [Suspect]
     Active Substance: INFLIXIMAB-DYYB
     Dosage: 1000 MG, EVERY 4 WEEKS
     Route: 042
     Dates: start: 20210728
  8. INFLECTRA [Suspect]
     Active Substance: INFLIXIMAB-DYYB
     Dosage: 1000 MG, EVERY 4 WEEKS
     Route: 042
     Dates: start: 20210825
  9. INFLECTRA [Suspect]
     Active Substance: INFLIXIMAB-DYYB
     Dosage: 1000 MG, EVERY 4 WEEKS
     Route: 042
     Dates: start: 20210923
  10. INFLECTRA [Suspect]
     Active Substance: INFLIXIMAB-DYYB
     Dosage: 1000 MG, EVERY 4 WEEKS
     Route: 042
     Dates: start: 20210923
  11. INFLECTRA [Suspect]
     Active Substance: INFLIXIMAB-DYYB
     Dosage: 1000 MG, EVERY 4 WEEKS
     Route: 042
     Dates: start: 20211020
  12. INFLECTRA [Suspect]
     Active Substance: INFLIXIMAB-DYYB
     Dosage: 1000 MG, EVERY 4 WEEKS
     Route: 042
     Dates: start: 20211117
  13. INFLECTRA [Suspect]
     Active Substance: INFLIXIMAB-DYYB
     Dosage: 1000 MG, EVERY 4 WEEKS
     Route: 042
     Dates: start: 20211215
  14. INFLECTRA [Suspect]
     Active Substance: INFLIXIMAB-DYYB
     Dosage: 1000 MG, EVERY 4 WEEKS
     Route: 042
     Dates: start: 20220112
  15. INFLECTRA [Suspect]
     Active Substance: INFLIXIMAB-DYYB
     Dosage: 1000 MG, EVERY 4 WEEKS
     Route: 042
     Dates: start: 20220209
  16. INFLECTRA [Suspect]
     Active Substance: INFLIXIMAB-DYYB
     Dosage: 1000 MG, EVERY 4 WEEKS
     Route: 042
     Dates: start: 20220603
  17. INFLECTRA [Suspect]
     Active Substance: INFLIXIMAB-DYYB
     Dosage: 1000 MG, EVERY 4 WEEKS
     Route: 042
     Dates: start: 20220628
  18. INFLECTRA [Suspect]
     Active Substance: INFLIXIMAB-DYYB
     Dosage: 1000 MG, EVERY 4 WEEKS
     Route: 042
     Dates: start: 20220823
  19. INFLECTRA [Suspect]
     Active Substance: INFLIXIMAB-DYYB
     Dosage: 1000 MG, EVERY 4 WEEKS
     Route: 042
     Dates: start: 20221118
  20. INFLECTRA [Suspect]
     Active Substance: INFLIXIMAB-DYYB
     Dosage: 1000 MG, EVERY 4 WEEKS
     Route: 042
     Dates: start: 20221216
  21. INFLECTRA [Suspect]
     Active Substance: INFLIXIMAB-DYYB
     Dosage: 1000 MG, EVERY 4 WEEKS
     Route: 042
     Dates: start: 20230113
  22. INFLECTRA [Suspect]
     Active Substance: INFLIXIMAB-DYYB
     Dosage: 1000 MG, EVERY 4 WEEKS
     Route: 042
     Dates: start: 20230210
  23. INFLECTRA [Suspect]
     Active Substance: INFLIXIMAB-DYYB
     Dosage: 600 MG, EVERY 4 WEEKS
     Route: 042
     Dates: start: 20230308
  24. INFLECTRA [Suspect]
     Active Substance: INFLIXIMAB-DYYB
     Dosage: 600 MG, EVERY 4 WEEKS
     Route: 042
     Dates: start: 20230317
  25. AZATHIOPRINE SODIUM [Concomitant]
     Active Substance: AZATHIOPRINE SODIUM
     Dosage: UNK
  26. BUDESONIDE [Concomitant]
     Active Substance: BUDESONIDE
     Dosage: UNK
  27. MESALAMINE [Concomitant]
     Active Substance: MESALAMINE
     Dosage: UNK
  28. PANTOPRAZOLE [Concomitant]
     Active Substance: PANTOPRAZOLE
     Dosage: UNK
  29. PREDNISONE [Concomitant]
     Active Substance: PREDNISONE
     Dosage: UNK
  30. PREDNISONE [Concomitant]
     Active Substance: PREDNISONE
     Dosage: 30 MG, DAILY, TAPER
  31. SULFASALAZINE [Concomitant]
     Active Substance: SULFASALAZINE
     Dosage: UNK
  32. BENADRYL [Concomitant]
     Active Substance: DIPHENHYDRAMINE HYDROCHLORIDE
     Dosage: 50 MG
     Route: 042
  33. TYLENOL [Concomitant]
     Active Substance: ACETAMINOPHEN
     Dosage: 650 MG

REACTIONS (15)
  - Anal abscess [Unknown]
  - Off label use [Unknown]
  - Off label use [Unknown]
  - Inappropriate schedule of product administration [Unknown]
  - Condition aggravated [Recovered/Resolved]
  - Fluctuance [Unknown]
  - Pain [Recovered/Resolved]
  - Exposure to SARS-CoV-2 [Unknown]
  - COVID-19 [Unknown]
  - Headache [Recovered/Resolved]
  - Feeling hot [Recovered/Resolved]
  - Hot flush [Recovered/Resolved]
  - Headache [Recovered/Resolved]
  - Periorbital pain [Unknown]
  - Headache [Unknown]

NARRATIVE: CASE EVENT DATE: 20210401
